FAERS Safety Report 4650735-0 (Version None)
Quarter: 2005Q2

REPORT INFORMATION
  Report Type: 
  Country: None (occurrence: None)
  Receive Date: 20050503
  Receipt Date: 20040621
  Transmission Date: 20051028
  Serious: Yes (Other)
  Sender: FDA-Public Use
  Company Number: US-2004-BP-04865BP

PATIENT
  Sex: Female

DRUGS (6)
  1. CATAPRES-TTS-1 [Suspect]
     Indication: HYPERTENSION
     Route: 061
     Dates: end: 20040619
  2. CATAPRES-TTS-1 [Suspect]
     Route: 061
  3. LANOXIN [Concomitant]
  4. SYNTHROID [Concomitant]
  5. MAXZIDE [Concomitant]
  6. TAMBOCOR [Concomitant]

REACTIONS (11)
  - APPLICATION SITE IRRITATION [None]
  - APPLICATION SITE SCAR [None]
  - ASTHENIA [None]
  - BLOOD PRESSURE DECREASED [None]
  - BLOOD PRESSURE INADEQUATELY CONTROLLED [None]
  - BRADYCARDIA [None]
  - FATIGUE [None]
  - METRORRHAGIA [None]
  - SKIN IRRITATION [None]
  - SUDDEN ONSET OF SLEEP [None]
  - UTERINE CANCER [None]
